FAERS Safety Report 13168184 (Version 1)
Quarter: 2017Q1

REPORT INFORMATION
  Report Type: Spontaneous
  Country: US (occurrence: US)
  Receive Date: 20170131
  Receipt Date: 20170131
  Transmission Date: 20170428
  Serious: Yes (Hospitalization)
  Sender: FDA-Public Use
  Company Number: US-STI PHARMA LLC-1062571

PATIENT
  Age: 64 Year
  Sex: Female

DRUGS (3)
  1. HUMIRA [Suspect]
     Active Substance: ADALIMUMAB
  2. ETHAMBUTOL HYDROCHLORIDE. [Suspect]
     Active Substance: ETHAMBUTOL HYDROCHLORIDE
  3. ENBREL [Suspect]
     Active Substance: ETANERCEPT

REACTIONS (6)
  - Hepatitis [None]
  - Visual field defect [None]
  - Toxic optic neuropathy [None]
  - Toxicity to various agents [None]
  - Vision blurred [None]
  - Ocular neoplasm [None]

NARRATIVE: CASE EVENT DATE: 20050301
